FAERS Safety Report 5645846-7 (Version None)
Quarter: 2008Q1

REPORT INFORMATION
  Report Type: 
  Country: None (occurrence: None)
  Receive Date: 20080229
  Receipt Date: 20080226
  Transmission Date: 20080703
  Serious: Yes (Death, Other)
  Sender: FDA-Public Use
  Company Number: GB-BAYER-GB-2006-039523

PATIENT
  Age: 59 Year
  Sex: Male
  Weight: 183 kg

DRUGS (8)
  1. FLUDARA [Suspect]
     Indication: CHRONIC LYMPHOCYTIC LEUKAEMIA
     Dosage: UNIT DOSE: 80 MG
     Route: 048
     Dates: start: 20060704, end: 20060706
  2. FLUDARA [Suspect]
     Dosage: UNIT DOSE: 80 MG
     Route: 048
     Dates: start: 20060802, end: 20060805
  3. CYCLOPHOSPHAMIDE [Concomitant]
     Indication: CHRONIC LYMPHOCYTIC LEUKAEMIA
     Route: 048
     Dates: start: 20060704
  4. NEUPOGEN [Concomitant]
     Indication: COLONY STIMULATING FACTOR PROPHYLAXIS
  5. ALLOPURINOL [Concomitant]
  6. DOMPERIDONE [Concomitant]
     Dosage: UNIT DOSE: 20 MG
  7. FLUCONAZOLE [Concomitant]
  8. OMEPRAZOLE [Concomitant]

REACTIONS (3)
  - ANAEMIA HAEMOLYTIC AUTOIMMUNE [None]
  - DISSEMINATED INTRAVASCULAR COAGULATION [None]
  - PULMONARY EMBOLISM [None]
